FAERS Safety Report 17750787 (Version 1)
Quarter: 2020Q2

REPORT INFORMATION
  Report Type: Spontaneous
  Country: US (occurrence: US)
  Receive Date: 20200506
  Receipt Date: 20200506
  Transmission Date: 20200714
  Serious: No
  Sender: FDA-Public Use
  Company Number: US-VERTEX PHARMACEUTICALS-2020-010144

PATIENT
  Sex: Male
  Weight: 56 kg

DRUGS (1)
  1. TRIKAFTA [Suspect]
     Active Substance: ELEXACAFTOR\IVACAFTOR\TEZACAFTOR
     Indication: CYSTIC FIBROSIS
     Dosage: 100 MG ELEXACFTOR/ 50 MG TEZACAFTOR/ 75 MG IVACAFTOR/ 150 MG IACAFTOR, TRADITIONAL DOSE
     Route: 048

REACTIONS (1)
  - Weight increased [Unknown]
